FAERS Safety Report 12539546 (Version 1)
Quarter: 2016Q3

REPORT INFORMATION
  Report Type: Spontaneous
  Country: DE (occurrence: DE)
  Receive Date: 20160708
  Receipt Date: 20160708
  Transmission Date: 20161109
  Serious: Yes (Disabling, Other)
  Sender: FDA-Public Use
  Company Number: DE-WATSON-2016-15021

PATIENT
  Age: 48 Year
  Sex: Male
  Weight: 85 kg

DRUGS (1)
  1. VALSARTAN (UNKNOWN) [Suspect]
     Active Substance: VALSARTAN
     Indication: HYPERTENSION
     Dosage: 80 MG, UNKNOWN
     Route: 048
     Dates: start: 20140601

REACTIONS (1)
  - Oral disorder [Recovered/Resolved with Sequelae]

NARRATIVE: CASE EVENT DATE: 20140620
